FAERS Safety Report 15136788 (Version 1)
Quarter: 2018Q3

REPORT INFORMATION
  Report Type: Spontaneous
  Country: ES (occurrence: ES)
  Receive Date: 20180712
  Receipt Date: 20180712
  Transmission Date: 20181010
  Serious: Yes (Other)
  Sender: FDA-Public Use
  Company Number: PHHY2018ES038172

PATIENT
  Age: 7 Month
  Sex: Female
  Weight: 6.8 kg

DRUGS (6)
  1. SEPTRIN PAEDIATRIC [Concomitant]
     Active Substance: SULFAMETHOXAZOLE\TRIMETHOPRIM
     Indication: PROPHYLAXIS
     Dosage: 1.5 ML, Q12H
     Route: 048
  2. METHOTREXATE. [Suspect]
     Active Substance: METHOTREXATE
     Indication: ACUTE LYMPHOCYTIC LEUKAEMIA
     Dosage: 1200 MG, QD
     Route: 042
     Dates: start: 20171004, end: 20171004
  3. FOLINATO CALCICO [Concomitant]
     Active Substance: LEUCOVORIN CALCIUM
     Indication: ACUTE LYMPHOCYTIC LEUKAEMIA
     Dosage: 6.4 MG, QD
     Route: 042
  4. MERCAPTOPURINA [Suspect]
     Active Substance: MERCAPTOPURINE
     Indication: ACUTE LYMPHOCYTIC LEUKAEMIA
     Dosage: 6 MG, QD
     Route: 048
     Dates: start: 20170920, end: 20170927
  5. ZOVIRAX [Concomitant]
     Active Substance: ACYCLOVIR
     Indication: PROPHYLAXIS
     Dosage: 64 MG, Q8H
     Route: 048
     Dates: start: 20170606
  6. COLECALCIFEROL [Concomitant]
     Active Substance: CHOLECALCIFEROL
     Indication: PROPHYLAXIS
     Dosage: 396 IU, QD
     Route: 048
     Dates: start: 20170606

REACTIONS (1)
  - Pancytopenia [Recovered/Resolved]

NARRATIVE: CASE EVENT DATE: 20171007
